FAERS Safety Report 6151375-7 (Version None)
Quarter: 2009Q2

REPORT INFORMATION
  Report Type: 
  Country: None (occurrence: None)
  Receive Date: 20090410
  Receipt Date: 20090406
  Transmission Date: 20091009
  Serious: Yes (Other)
  Sender: FDA-Public Use
  Company Number: US-B.I. PHARMACEUTICALS,INC./RIDGEFIELD-2009-BP-04319BP

PATIENT
  Sex: Female

DRUGS (6)
  1. SPIRIVA [Suspect]
     Indication: CHRONIC OBSTRUCTIVE PULMONARY DISEASE
     Dosage: 18MCG
     Route: 055
     Dates: end: 20090401
  2. PRILOSEC [Concomitant]
  3. PRAVASTATIN [Concomitant]
  4. HYDROCHLOROTHIAZIDE [Concomitant]
     Indication: FLUID RETENTION
  5. AZMACORT [Concomitant]
     Indication: ASTHMA
  6. OXYGEN [Concomitant]
     Indication: ASTHMA

REACTIONS (5)
  - CHEST DISCOMFORT [None]
  - DIPLOPIA [None]
  - DRY MOUTH [None]
  - GLUCOSE TOLERANCE IMPAIRED [None]
  - OCULAR HYPERTENSION [None]
